FAERS Safety Report 9626873 (Version 1)
Quarter: 2013Q4

REPORT INFORMATION
  Report Type: Spontaneous
  Country: NL (occurrence: NL)
  Receive Date: 20131016
  Receipt Date: 20131016
  Transmission Date: 20140711
  Serious: Yes (Death, Hospitalization)
  Sender: FDA-Public Use
  Company Number: NL-TEVA-436865ISR

PATIENT
  Age: 76 Year
  Sex: Male

DRUGS (2)
  1. METFORMINE TABLET 500MG [Suspect]
     Indication: DIABETES MELLITUS
     Dosage: 1500 MILLIGRAM DAILY; 3 TIMES A DAY 1 PIECE
     Route: 048
     Dates: start: 2012, end: 20130731
  2. PRAVASTATINE TABLET 40MG [Concomitant]
     Dosage: 40 MILLIGRAM DAILY; 1 TIME A DAY 1 PIECE
     Route: 048
     Dates: end: 20130731

REACTIONS (4)
  - Bladder neoplasm [Fatal]
  - Renal failure acute [Unknown]
  - Sepsis [Unknown]
  - Lactic acidosis [Unknown]
